FAERS Safety Report 5553888-5 (Version None)
Quarter: 2007Q4

REPORT INFORMATION
  Report Type: 
  Country: None (occurrence: None)
  Receive Date: 20071212
  Receipt Date: 20071212
  Transmission Date: 20080405
  Serious: Yes (Hospitalization)
  Sender: FDA-Public Use
  Company Number: None

PATIENT
  Age: 21 Year
  Sex: Male

DRUGS (1)
  1. AMBIEN [Suspect]

REACTIONS (3)
  - AMNESTIC DISORDER [None]
  - INCORRECT DOSE ADMINISTERED [None]
  - SELF INJURIOUS BEHAVIOUR [None]
